FAERS Safety Report 8044577-6 (Version None)
Quarter: 2012Q1

REPORT INFORMATION
  Report Type: 
  Country: None (occurrence: None)
  Receive Date: 20120113
  Receipt Date: 20120113
  Transmission Date: 20120608
  Serious: Yes (Hospitalization)
  Sender: FDA-Public Use
  Company Number: None

PATIENT
  Sex: Male
  Weight: 133.35 kg

DRUGS (14)
  1. NYQUIL [Concomitant]
  2. CITALOPRAM [Concomitant]
  3. PEGASYS [Suspect]
     Indication: HEPATITIS C
     Dosage: 180MCG
     Route: 058
     Dates: start: 20111129, end: 20120111
  4. GABAPENTIN [Concomitant]
  5. RIBAVIRIN [Concomitant]
     Indication: HEPATITIS C
     Dosage: 400MG
     Route: 048
     Dates: start: 20111129, end: 20120111
  6. FLUTICASONE INHALER [Concomitant]
  7. GEODON [Concomitant]
  8. METOPROLOL [Concomitant]
  9. FAMOTIDINE [Concomitant]
  10. ALBUTEROL [Concomitant]
  11. AZITHROMYCIN [Concomitant]
  12. HYDRALAZINE HCL [Concomitant]
  13. ASPIRIN [Concomitant]
  14. RANITIDINE [Concomitant]

REACTIONS (1)
  - PNEUMONIA [None]
